FAERS Safety Report 13862376 (Version 1)
Quarter: 2017Q3

REPORT INFORMATION
  Report Type: Spontaneous
  Country: US (occurrence: US)
  Receive Date: 20170813
  Receipt Date: 20170813
  Transmission Date: 20171127
  Serious: Yes (Hospitalization)
  Sender: FDA-Public Use
  Company Number: US-BEH-2017082715

PATIENT
  Sex: Female
  Weight: 66.67 kg

DRUGS (34)
  1. HIZENTRA [Suspect]
     Active Substance: HUMAN IMMUNOGLOBULIN G
     Dosage: UNK
     Route: 058
  2. SYMBICORT [Concomitant]
     Active Substance: BUDESONIDE\FORMOTEROL FUMARATE DIHYDRATE
  3. CLONIDINE. [Concomitant]
     Active Substance: CLONIDINE
  4. SENNA                              /00142201/ [Concomitant]
     Active Substance: SENNA LEAF
  5. HIZENTRA [Suspect]
     Active Substance: HUMAN IMMUNOGLOBULIN G
     Indication: IMMUNODEFICIENCY COMMON VARIABLE
     Dosage: 9 G, BIW
     Route: 058
     Dates: start: 20130913
  6. ACETAMINOPHEN. [Concomitant]
     Active Substance: ACETAMINOPHEN
  7. MELATONIN [Concomitant]
     Active Substance: MELATONIN
  8. BUPROPION. [Concomitant]
     Active Substance: BUPROPION
  9. OMEPRAZOLE. [Concomitant]
     Active Substance: OMEPRAZOLE
  10. LIDOCAINE/PRILOCAINE [Concomitant]
     Active Substance: LIDOCAINE\PRILOCAINE
  11. NASONEX [Concomitant]
     Active Substance: MOMETASONE FUROATE
  12. GABAPENTIN. [Concomitant]
     Active Substance: GABAPENTIN
  13. VITAMINS WITH MINERALS [Concomitant]
     Active Substance: MINERALS\VITAMINS
  14. ONDANSETRON [Concomitant]
     Active Substance: ONDANSETRON
  15. SALEX                              /00008507/ [Concomitant]
  16. LIPITOR [Concomitant]
     Active Substance: ATORVASTATIN CALCIUM
  17. METOPROLOL. [Concomitant]
     Active Substance: METOPROLOL
  18. HYZAAR [Concomitant]
     Active Substance: HYDROCHLOROTHIAZIDE\LOSARTAN POTASSIUM
  19. LIDODERM [Concomitant]
     Active Substance: LIDOCAINE
  20. FLEXERIL [Concomitant]
     Active Substance: CYCLOBENZAPRINE HYDROCHLORIDE
  21. DIPHENHYDRAMINE. [Concomitant]
     Active Substance: DIPHENHYDRAMINE
  22. SALINE                             /00075401/ [Concomitant]
     Active Substance: SODIUM CHLORIDE
  23. NEUPOGEN [Concomitant]
     Active Substance: FILGRASTIM
  24. SINGULAIR [Concomitant]
     Active Substance: MONTELUKAST SODIUM
  25. EPIPEN [Concomitant]
     Active Substance: EPINEPHRINE
  26. TEMOVATE [Concomitant]
     Active Substance: CLOBETASOL PROPIONATE
  27. LEVOXYL [Concomitant]
     Active Substance: LEVOTHYROXINE SODIUM
  28. CALCIUM PLUS VITAMIN D [Concomitant]
     Active Substance: CALCIUM\VITAMIN D
  29. LORATADINE. [Concomitant]
     Active Substance: LORATADINE
  30. HIZENTRA [Suspect]
     Active Substance: HUMAN IMMUNOGLOBULIN G
     Dosage: UNK
     Route: 058
  31. LIDOCAINE. [Concomitant]
     Active Substance: LIDOCAINE
  32. TYLENOL WITH CODEINE [Concomitant]
     Active Substance: ACETAMINOPHEN\CODEINE PHOSPHATE
  33. ALBUTEROL                          /00139501/ [Concomitant]
     Active Substance: ALBUTEROL
  34. L-LYSINE                           /00919901/ [Concomitant]

REACTIONS (3)
  - Venous stent insertion [Unknown]
  - Brachiocephalic vein occlusion [Unknown]
  - Angioplasty [Unknown]
